FAERS Safety Report 13003336 (Version 1)
Quarter: 2016Q4

REPORT INFORMATION
  Report Type: Spontaneous
  Country: DE (occurrence: DE)
  Receive Date: 20161206
  Receipt Date: 20161206
  Transmission Date: 20170207
  Serious: Yes (Congenital Anomaly)
  Sender: FDA-Public Use
  Company Number: DE-MYLANLABS-2016M1052932

PATIENT

DRUGS (7)
  1. IBUPROFEN LYSINATE [Concomitant]
     Active Substance: IBUPROFEN LYSINE
     Indication: MIGRAINE
     Dosage: TWICE, DOSAGE UNKNOWN
     Route: 064
  2. FOLIO FORTE [Concomitant]
     Active Substance: FOLIC ACID\VITAMINS
     Indication: PROPHYLAXIS OF NEURAL TUBE DEFECT
     Dosage: 0.8 [MG/D ]
     Route: 064
     Dates: start: 20151002, end: 20160701
  3. ESCITALOPRAM [Suspect]
     Active Substance: ESCITALOPRAM OXALATE
     Indication: DEPRESSION
     Dosage: 10 [MG/D ]
     Route: 064
     Dates: start: 20151004, end: 20160701
  4. THYRONAJOD [Concomitant]
     Active Substance: LEVOTHYROXINE SODIUM\POTASSIUM IODIDE
     Indication: HYPOTHYROIDISM
     Dosage: 50/150
     Route: 064
     Dates: start: 20151004, end: 20160701
  5. PARACETAMOL [Concomitant]
     Active Substance: ACETAMINOPHEN
     Indication: MIGRAINE
     Dosage: 500 [MG/D ]/ 2-3 TIMES, IF NECESSARY
     Route: 064
  6. KORODIN                            /08256501/ [Concomitant]
     Indication: PRODUCT USED FOR UNKNOWN INDICATION
     Dosage: UNK UNK, 3XW
     Route: 064
  7. OPIPRAMOL [Concomitant]
     Active Substance: OPIPRAMOL
     Indication: SLEEP DISORDER
     Dosage: 50 [MG/D ]
     Route: 064

REACTIONS (1)
  - Ventricular septal defect [Recovering/Resolving]

NARRATIVE: CASE EVENT DATE: 20160701
